FAERS Safety Report 11500623 (Version 1)
Quarter: 2015Q3

REPORT INFORMATION
  Report Type: Spontaneous
  Country: AU (occurrence: AU)
  Receive Date: 20150914
  Receipt Date: 20150914
  Transmission Date: 20151125
  Serious: Yes (Death, Hospitalization)
  Sender: FDA-Public Use
  Company Number: AU-CELGENE-AUS-2015081594

PATIENT
  Age: 90 Year
  Sex: Male
  Weight: 59 kg

DRUGS (2)
  1. THALIDOMIDE [Suspect]
     Active Substance: THALIDOMIDE
     Indication: PRODUCT USED FOR UNKNOWN INDICATION
     Dosage: 100 MILLIGRAM
     Route: 048
  2. ASPIRIN. [Suspect]
     Active Substance: ASPIRIN
     Indication: THROMBOSIS
     Route: 065

REACTIONS (2)
  - Acute kidney injury [Fatal]
  - Epistaxis [Recovered/Resolved]

NARRATIVE: CASE EVENT DATE: 20150730
